FAERS Safety Report 4586790-6 (Version None)
Quarter: 2005Q1

REPORT INFORMATION
  Report Type: 
  Country: None (occurrence: None)
  Receive Date: 20050217
  Receipt Date: 20050217
  Transmission Date: 20050727
  Serious: Yes (Disabling)
  Sender: FDA-Public Use
  Company Number: None

PATIENT
  Age: 32 Year
  Sex: Female
  Weight: 61.6892 kg

DRUGS (2)
  1. PANTOPAQUE [Suspect]
  2. AMNIPAQUE [Suspect]

REACTIONS (2)
  - ARACHNOIDITIS [None]
  - SYRINGOMYELIA [None]
